FAERS Safety Report 19322386 (Version 1)
Quarter: 2021Q2

REPORT INFORMATION
  Report Type: Spontaneous
  Country: DE (occurrence: DE)
  Receive Date: 20210528
  Receipt Date: 20210528
  Transmission Date: 20210717
  Serious: Yes (Other)
  Sender: FDA-Public Use
  Company Number: DE-TEVA-2021-DE-1915275

PATIENT
  Age: 1 Day
  Sex: Male

DRUGS (3)
  1. VENLAFAXINE [Suspect]
     Active Substance: VENLAFAXINE HYDROCHLORIDE
     Indication: DEPRESSION
     Dosage: 225 MILLIGRAM DAILY;
     Route: 064
     Dates: start: 20191018, end: 20200710
  2. PIPAMPERONE [Suspect]
     Active Substance: PIPAMPERONE
     Indication: RESTLESSNESS
     Dosage: 80 MILLIGRAM DAILY;
     Route: 064
     Dates: start: 20191018, end: 20200710
  3. PREGABALIN. [Concomitant]
     Active Substance: PREGABALIN
     Indication: ANXIETY
     Dosage: 50 MILLIGRAM DAILY;
     Route: 064
     Dates: start: 20191018, end: 20191217

REACTIONS (2)
  - Foetal exposure during pregnancy [Unknown]
  - Small for dates baby [Recovered/Resolved]

NARRATIVE: CASE EVENT DATE: 20191018
